FAERS Safety Report 5478339-0 (Version None)
Quarter: 2007Q4

REPORT INFORMATION
  Report Type: 
  Country: None (occurrence: None)
  Receive Date: 20071005
  Receipt Date: 20071001
  Transmission Date: 20080405
  Serious: Yes (Death, Life-Threatening)
  Sender: FDA-Public Use
  Company Number: A0676668A

PATIENT
  Age: 59 Year
  Sex: Male

DRUGS (8)
  1. PARNATE [Suspect]
     Indication: DEPRESSION
     Dosage: 10MG TWICE PER DAY
     Route: 048
     Dates: start: 19990101, end: 20070819
  2. LAMICTAL [Suspect]
     Indication: BIPOLAR DISORDER
     Route: 048
     Dates: start: 20070501, end: 20070718
  3. LITHIUM [Suspect]
     Indication: BIPOLAR II DISORDER
     Route: 048
     Dates: start: 19990101, end: 20060101
  4. THYROID TAB [Concomitant]
     Route: 065
  5. RISPERDAL [Concomitant]
     Route: 065
     Dates: start: 20070501
  6. ASPIRIN [Concomitant]
  7. METOPROLOL TARTRATE [Concomitant]
     Dosage: 25MG TWICE PER DAY
     Route: 048
  8. TRAZODONE HCL [Concomitant]
     Dosage: 50MG AT NIGHT
     Route: 048

REACTIONS (15)
  - ASTHENIA [None]
  - COMPLETED SUICIDE [None]
  - DECREASED APPETITE [None]
  - DECREASED INTEREST [None]
  - DEPRESSED MOOD [None]
  - DISTURBANCE IN ATTENTION [None]
  - DRUG INEFFECTIVE [None]
  - FEELING OF DESPAIR [None]
  - MEMORY IMPAIRMENT [None]
  - MOOD SWINGS [None]
  - PARANOIA [None]
  - PERFORMANCE STATUS DECREASED [None]
  - POOR QUALITY SLEEP [None]
  - STOMACH DISCOMFORT [None]
  - WEIGHT DECREASED [None]
